FAERS Safety Report 5685002-X (Version None)
Quarter: 2008Q1

REPORT INFORMATION
  Report Type: 
  Country: None (occurrence: None)
  Receive Date: 20080328
  Receipt Date: 19970707
  Transmission Date: 20080703
  Serious: Yes (Death)
  Sender: FDA-Public Use
  Company Number: US-ROCHE-78125

PATIENT
  Age: 43 Year
  Sex: Male

DRUGS (2)
  1. CYTOVENE [Suspect]
     Route: 042
     Dates: start: 19970217, end: 19970221
  2. CYTOVENE [Suspect]
     Route: 042
     Dates: start: 19970321, end: 19970405

REACTIONS (5)
  - COMMUNICATION DISORDER [None]
  - CONFUSIONAL STATE [None]
  - CYTOMEGALOVIRUS INFECTION [None]
  - DEATH [None]
  - HALLUCINATION [None]
